FAERS Safety Report 17665291 (Version 1)
Quarter: 2020Q2

REPORT INFORMATION
  Report Type: Spontaneous
  Country: US (occurrence: US)
  Receive Date: 20200413
  Receipt Date: 20200413
  Transmission Date: 20200713
  Serious: No
  Sender: FDA-Public Use
  Company Number: None

PATIENT
  Age: 26 Year
  Sex: Female

DRUGS (1)
  1. COPAXONE [Suspect]
     Active Substance: GLATIRAMER ACETATE
     Indication: MULTIPLE SCLEROSIS
     Route: 058
     Dates: start: 201907

REACTIONS (4)
  - Injection site hypoaesthesia [None]
  - Injection site pain [None]
  - Injection site bruising [None]
  - Dyspnoea [None]

NARRATIVE: CASE EVENT DATE: 202004
